FAERS Safety Report 7433362-1 (Version None)
Quarter: 2011Q2

REPORT INFORMATION
  Report Type: 
  Country: None (occurrence: None)
  Receive Date: 20110422
  Receipt Date: 20110419
  Transmission Date: 20111010
  Serious: No
  Sender: FDA-Public Use
  Company Number: US-B.I. PHARMACEUTICALS,INC./RIDGEFIELD-2011-BP-06303BP

PATIENT
  Sex: Female

DRUGS (8)
  1. GLIPIZIDE [Concomitant]
     Dosage: 5 MG
  2. KT [Concomitant]
     Dosage: 20 MCG
  3. PRADAXA [Suspect]
     Dates: end: 20110225
  4. FOLIC ACID [Concomitant]
     Dosage: 1 MG
  5. SYNTHROID [Concomitant]
     Dosage: 0.05 MG
  6. AVAPRO [Concomitant]
     Dosage: 150 MG
  7. LASIX [Concomitant]
     Dosage: 20 MG
  8. LEXAPRO [Concomitant]
     Dosage: 15 MG

REACTIONS (2)
  - PERIORBITAL OEDEMA [None]
  - SWELLING [None]
